FAERS Safety Report 6247701-0 (Version None)
Quarter: 2009Q2

REPORT INFORMATION
  Report Type: 
  Country: None (occurrence: None)
  Receive Date: 20090626
  Receipt Date: 20090618
  Transmission Date: 20091009
  Serious: Yes (Hospitalization, Other)
  Sender: FDA-Public Use
  Company Number: US-ABBOTT-09P-163-0580833-00

PATIENT
  Sex: Female
  Weight: 39.498 kg

DRUGS (5)
  1. HUMIRA [Suspect]
     Indication: RHEUMATOID ARTHRITIS
     Dates: start: 20060601, end: 20081207
  2. HUMIRA [Suspect]
     Dates: start: 20090401
  3. HUMIRA [Suspect]
     Indication: RHEUMATOID ARTHRITIS
     Dates: start: 20040501
  4. HUMIRA [Suspect]
     Dosage: 1 EVERY OTHER WEEK
  5. HUMIRA [Suspect]

REACTIONS (5)
  - COLON OPERATION [None]
  - FALL [None]
  - FEMUR FRACTURE [None]
  - PNEUMONIA [None]
  - RHEUMATOID ARTHRITIS [None]
